FAERS Safety Report 4706330-8 (Version None)
Quarter: 2005Q2

REPORT INFORMATION
  Report Type: 
  Country: None (occurrence: None)
  Receive Date: 20050629
  Receipt Date: 20050623
  Transmission Date: 20051028
  Serious: Yes (Other)
  Sender: FDA-Public Use
  Company Number: 2005092498

PATIENT
  Age: 47 Year
  Sex: Male
  Weight: 153.3158 kg

DRUGS (7)
  1. BEXTRA [Suspect]
     Indication: BURSITIS
     Dosage: 40 MG (20 MG, 2 IN 1 D), ORAL
     Route: 048
  2. PERCOCET [Concomitant]
  3. FOSINOPRIL SODIUM [Concomitant]
  4. ZOLOFT [Concomitant]
  5. BACLOFEN [Concomitant]
  6. CIPROFLOXACIN [Concomitant]
  7. ZYRTEC [Concomitant]

REACTIONS (13)
  - AMNESIA [None]
  - BLINDNESS [None]
  - COLD SWEAT [None]
  - CORONARY ARTERY OCCLUSION [None]
  - DYSPHAGIA [None]
  - INFLUENZA LIKE ILLNESS [None]
  - INTESTINAL FUNCTIONAL DISORDER [None]
  - LOSS OF CONSCIOUSNESS [None]
  - NASAL DISCOMFORT [None]
  - PALPITATIONS [None]
  - SKIN DEPIGMENTATION [None]
  - SKIN EXFOLIATION [None]
  - SKIN NODULE [None]
